FAERS Safety Report 9680886 (Version 2)
Quarter: 2013Q4

REPORT INFORMATION
  Report Type: Spontaneous
  Country: US (occurrence: US)
  Receive Date: 20131111
  Receipt Date: 20131121
  Transmission Date: 20140711
  Serious: Yes (Death)
  Sender: FDA-Public Use
  Company Number: US-ASTELLAS-2013US011477

PATIENT
  Sex: Male

DRUGS (4)
  1. XTANDI [Suspect]
     Indication: PROSTATE CANCER
     Dosage: 160 MG, UID/QD
     Route: 048
     Dates: start: 20130806
  2. XTANDI [Suspect]
     Dosage: UNK
     Route: 048
     Dates: end: 20131013
  3. XGEVA [Concomitant]
     Indication: PROSTATE CANCER METASTATIC
     Dosage: UNK
     Route: 065
  4. XGEVA [Concomitant]
     Indication: METASTASES TO BONE

REACTIONS (4)
  - Malignant neoplasm progression [Fatal]
  - Nausea [Unknown]
  - Asthenia [Unknown]
  - Bone pain [Unknown]
